FAERS Safety Report 8691233 (Version 2)
Quarter: 2012Q4

REPORT INFORMATION
  Report Type: 
  Country: BR (occurrence: BR)
  Receive Date: 20120730
  Receipt Date: 20120829
  Transmission Date: 20130627
  Serious: Yes (Other)
  Sender: FDA-Public Use
  Company Number: PHHY2012BR064705

PATIENT
  Age: 64 None
  Sex: Female

DRUGS (4)
  1. DIOVAN HCT [Suspect]
     Indication: HYPERTENSION
     Dosage: 1 DF (vals 160 mg, HCTZ 12.5 mg), UNK
  2. UNSPECIFIED INGREDIENT [Suspect]
     Dosage: UNK UKN, UNK
  3. ATORVASTATIN [Concomitant]
     Indication: ARTERIOSCLEROSIS
     Dosage: 10 mg, daily
     Route: 048
  4. AAS [Concomitant]
     Indication: BLOOD VISCOSITY INCREASED

REACTIONS (8)
  - Endometrial disorder [Recovered/Resolved]
  - Foot fracture [Recovering/Resolving]
  - Fall [Recovering/Resolving]
  - Exostosis [Recovering/Resolving]
  - Breast mass [Recovered/Resolved]
  - Osteoarthritis [Recovering/Resolving]
  - Fungal infection [Not Recovered/Not Resolved]
  - Arthritis [Recovering/Resolving]
